FAERS Safety Report 7947210-4 (Version None)
Quarter: 2011Q4

REPORT INFORMATION
  Report Type: 
  Country: None (occurrence: None)
  Receive Date: 20111129
  Receipt Date: 20111112
  Transmission Date: 20120403
  Serious: Yes (Death, Congenital Anomaly)
  Sender: FDA-Public Use
  Company Number: DK-ASTRAZENECA-2011SE71731

PATIENT
  Age: 0 Week

DRUGS (2)
  1. METOPROLOL SUCCINATE [Suspect]
     Route: 064
  2. PAROXETINE HCL [Concomitant]
     Route: 064

REACTIONS (2)
  - CONGENITAL GENITOURINARY ABNORMALITY [None]
  - RENAL APLASIA [None]
